FAERS Safety Report 10597860 (Version 2)
Quarter: 2014Q4

REPORT INFORMATION
  Report Type: Report from Study
  Country: JP (occurrence: JP)
  Receive Date: 20141121
  Receipt Date: 20141121
  Transmission Date: 20150529
  Serious: Yes (Death, Hospitalization)
  Sender: FDA-Public Use
  Company Number: JP-PFIZER INC-2014283416

PATIENT
  Age: 56 Year
  Sex: Female
  Weight: 44.5 kg

DRUGS (3)
  1. XALKORI [Suspect]
     Active Substance: CRIZOTINIB
     Indication: NON-SMALL CELL LUNG CANCER
     Dosage: 250 MG, 2X/DAY
     Route: 048
     Dates: start: 20140118, end: 20140206
  2. ZYPREXA [Concomitant]
     Active Substance: OLANZAPINE
     Dosage: 2.5 MG, 1X/DAY
     Route: 048
     Dates: start: 20140122, end: 20140208
  3. NASEA [Concomitant]
     Active Substance: RAMOSETRON HYDROCHLORIDE
     Dosage: 0.1 MG, AS NEEDED
     Route: 048
     Dates: start: 20140128, end: 20140208

REACTIONS (2)
  - Interstitial lung disease [Fatal]
  - Pneumonia herpes viral [Fatal]

NARRATIVE: CASE EVENT DATE: 20140206
